FAERS Safety Report 19211351 (Version 1)
Quarter: 2021Q2

REPORT INFORMATION
  Report Type: Spontaneous
  Country: US (occurrence: US)
  Receive Date: 20210501
  Receipt Date: 20210501
  Transmission Date: 20210717
  Serious: Yes (Life-Threatening, Hospitalization, Other)
  Sender: FDA-Public Use
  Company Number: US-UNITED THERAPEUTICS-UNT-2021-007783

PATIENT
  Sex: Female

DRUGS (2)
  1. REMODULIN [Suspect]
     Active Substance: TREPROSTINIL
     Dosage: 0.030 ?G/KG, CONTINUING
     Route: 041
  2. REMODULIN [Suspect]
     Active Substance: TREPROSTINIL
     Indication: PULMONARY ARTERIAL HYPERTENSION
     Dosage: 0.002 ?G/KG, CONTINUING
     Route: 041

REACTIONS (8)
  - Disseminated intravascular coagulation [Unknown]
  - Acute kidney injury [Unknown]
  - Pre-eclampsia [Unknown]
  - Respiratory failure [Unknown]
  - HELLP syndrome [Unknown]
  - Septic shock [Unknown]
  - Cardiac failure [Unknown]
  - Maternal exposure during pregnancy [Recovered/Resolved]
